FAERS Safety Report 9668975 (Version 1)
Quarter: 2013Q4

REPORT INFORMATION
  Report Type: Spontaneous
  Country: US (occurrence: US)
  Receive Date: 20131105
  Receipt Date: 20131105
  Transmission Date: 20140711
  Serious: No
  Sender: FDA-Public Use
  Company Number: US-PFIZER INC-2013311782

PATIENT
  Sex: Female

DRUGS (1)
  1. ZITHROMAX [Suspect]
     Dosage: UNK, 1X/DAY
     Route: 048
     Dates: start: 20131011, end: 20131016

REACTIONS (3)
  - Parosmia [Unknown]
  - Dysgeusia [Unknown]
  - Anosmia [Unknown]
